FAERS Safety Report 4531579-7 (Version None)
Quarter: 2004Q4

REPORT INFORMATION
  Report Type: 
  Country: None (occurrence: None)
  Receive Date: 20041220
  Receipt Date: 20040913
  Transmission Date: 20050328
  Serious: Yes (Other)
  Sender: FDA-Public Use
  Company Number: PHBS2004BR12042

PATIENT
  Age: 76 Year
  Sex: Female

DRUGS (8)
  1. EXELON [Suspect]
     Indication: DEMENTIA ALZHEIMER'S TYPE
     Dosage: UNK, UNK
     Route: 048
  2. EXELON [Suspect]
     Dosage: 4.5 MG, BID
     Route: 048
  3. EXELON [Suspect]
     Dosage: 10.5 MG/D
     Route: 048
  4. LEXOTAN [Concomitant]
     Route: 065
  5. SEROQUEL [Concomitant]
     Dosage: UNK, TID
     Route: 065
  6. EUCIL [Concomitant]
     Route: 065
  7. TAMOXIFEN CITRATE [Concomitant]
     Route: 065
  8. PURAN T4 [Concomitant]
     Route: 065

REACTIONS (7)
  - AGGRESSION [None]
  - CHEST PAIN [None]
  - CONFUSIONAL STATE [None]
  - COUGH [None]
  - CRYING [None]
  - INFLUENZA [None]
  - PHARYNGOLARYNGEAL PAIN [None]
